FAERS Safety Report 9565988 (Version 2)
Quarter: 2016Q1

REPORT INFORMATION
  Report Type: Spontaneous
  Country: CA (occurrence: CA)
  Receive Date: 20130930
  Receipt Date: 20160114
  Transmission Date: 20160526
  Serious: Yes (Life-Threatening, Other)
  Sender: FDA-Public Use
  Company Number: CA-009507513-1309CAN013926

PATIENT
  Age: 39 Year
  Sex: Female
  Weight: 64.4 kg

DRUGS (6)
  1. FOLLITROPIN BETA [Suspect]
     Active Substance: FOLLITROPIN
     Indication: IN VITRO FERTILISATION
     Dosage: UNK
     Route: 065
     Dates: start: 201204, end: 201205
  2. GONADOTROPIN, CHORIONIC [Suspect]
     Active Substance: CHORIOGONADOTROPIN ALFA
     Indication: IN VITRO FERTILISATION
     Dosage: UNK
     Route: 030
     Dates: start: 201204, end: 201205
  3. ORGALUTRAN [Suspect]
     Active Substance: GANIRELIX ACETATE
     Indication: IN VITRO FERTILISATION
     Dosage: 250 MCG/0.5ML
     Route: 058
     Dates: start: 201204, end: 201205
  4. LOSEC (OMEPRAZOLE) [Concomitant]
     Indication: PRODUCT USED FOR UNKNOWN INDICATION
     Dosage: 20 MG, BID
     Route: 048
     Dates: start: 1996
  5. MENOPUR [Suspect]
     Active Substance: FOLLICLE STIMULATING HORMONE BETA POLYPEPTIDE\LUTROPIN ALFA
     Indication: IN VITRO FERTILISATION
     Dosage: UNK
     Route: 058
     Dates: start: 201204, end: 201205
  6. OVIDREL [Suspect]
     Active Substance: CHORIOGONADOTROPIN ALFA
     Indication: PRODUCT USED FOR UNKNOWN INDICATION
     Dosage: UNK
     Route: 058
     Dates: start: 201204, end: 201205

REACTIONS (6)
  - Thyroiditis [Recovered/Resolved]
  - Cardiac disorder [Unknown]
  - Goitre [Not Recovered/Not Resolved]
  - Hyperthyroidism [Recovered/Resolved]
  - Hypothyroidism [Recovered/Resolved]
  - Basedow^s disease [Recovered/Resolved]

NARRATIVE: CASE EVENT DATE: 201204
